FAERS Safety Report 23429904 (Version 3)
Quarter: 2024Q1

REPORT INFORMATION
  Report Type: Spontaneous
  Country: PT (occurrence: PT)
  Receive Date: 20240122
  Receipt Date: 20240226
  Transmission Date: 20240410
  Serious: Yes (Other)
  Sender: FDA-Public Use
  Company Number: None

PATIENT
  Age: 75 Year
  Sex: Female

DRUGS (14)
  1. BOTOX [Suspect]
     Active Substance: ONABOTULINUMTOXINA
     Indication: Skin wrinkling
     Dosage: TIME INTERVAL: AS NECESSARY
     Route: 030
     Dates: start: 20231129, end: 20231129
  2. BOTOX [Suspect]
     Active Substance: ONABOTULINUMTOXINA
     Indication: Skin wrinkling
     Dosage: TIME INTERVAL: AS NECESSARY
     Route: 030
     Dates: start: 20231129, end: 20231129
  3. BOTOX [Suspect]
     Active Substance: ONABOTULINUMTOXINA
     Indication: Skin wrinkling
     Dosage: TIME INTERVAL: AS NECESSARY
     Route: 030
     Dates: start: 20231129, end: 20231129
  4. BOTOX [Suspect]
     Active Substance: ONABOTULINUMTOXINA
     Indication: Skin wrinkling
     Dosage: TIME INTERVAL: AS NECESSARY
     Route: 030
     Dates: start: 20231129, end: 20231129
  5. LEVOTHYROXINE SODIUM [Concomitant]
     Active Substance: LEVOTHYROXINE SODIUM
     Indication: Product used for unknown indication
     Dosage: FORM STRENGTH: 1 MG
     Route: 048
  6. Rosuvastatin/acetylsalicylic acid adamed [Concomitant]
     Indication: Product used for unknown indication
  7. MEBEVERINE HYDROCHLORIDE [Concomitant]
     Active Substance: MEBEVERINE HYDROCHLORIDE
     Indication: Product used for unknown indication
     Route: 048
  8. MEBEVERINE [Concomitant]
     Active Substance: MEBEVERINE
     Indication: Product used for unknown indication
     Dosage: DUSPATAL RETARD
     Route: 048
  9. BISOPROLOL FUMARATE [Concomitant]
     Active Substance: BISOPROLOL FUMARATE
     Indication: Product used for unknown indication
     Dosage: FORM STRENGTH: 5 MG
     Route: 048
  10. ESOMEPRAZOLE [Concomitant]
     Active Substance: ESOMEPRAZOLE
     Indication: Product used for unknown indication
     Dosage: FORM STRENGTH: 20 MG
  11. FLUCLOXACILLIN [Concomitant]
     Active Substance: FLUCLOXACILLIN
     Indication: Product used for unknown indication
     Dates: start: 20240106
  12. FUSIDIC ACID\HYDROCORTISONE ACETATE [Concomitant]
     Active Substance: FUSIDIC ACID\HYDROCORTISONE ACETATE
     Indication: Product used for unknown indication
     Dosage: 20 MG/G + 10 MG/G
     Dates: start: 20240106
  13. DEFLAZACORT [Concomitant]
     Active Substance: DEFLAZACORT
     Indication: Product used for unknown indication
     Dosage: FOR 10 DAYS.
  14. BETAMETHASONE VALERATE\FUSIDIC ACID [Concomitant]
     Active Substance: BETAMETHASONE VALERATE\FUSIDIC ACID
     Indication: Product used for unknown indication
     Dosage: OINTMENT 3X/DAY

REACTIONS (4)
  - Off label use [Unknown]
  - Granuloma skin [Not Recovered/Not Resolved]
  - Injection site nodule [Unknown]
  - Injection site reaction [Unknown]

NARRATIVE: CASE EVENT DATE: 20231206
